FAERS Safety Report 19627675 (Version 4)
Quarter: 2021Q3

REPORT INFORMATION
  Report Type: Report from Study
  Country: US (occurrence: US)
  Receive Date: 20210728
  Receipt Date: 20210907
  Transmission Date: 20211014
  Serious: Yes (Hospitalization, Other)
  Sender: FDA-Public Use
  Company Number: US-BAYER-2021-182458

PATIENT
  Age: 72 Year
  Sex: Female

DRUGS (1)
  1. BETASERON [Suspect]
     Active Substance: INTERFERON BETA-1B
     Indication: MULTIPLE SCLEROSIS
     Dosage: 3 ML, QD

REACTIONS (7)
  - Seizure [None]
  - Extremity contracture [None]
  - Decubitus ulcer [None]
  - Product use issue [Not Recovered/Not Resolved]
  - Inappropriate schedule of product administration [None]
  - Product dose omission issue [None]
  - Malnutrition [None]

NARRATIVE: CASE EVENT DATE: 202106
